FAERS Safety Report 24814922 (Version 1)
Quarter: 2025Q1

REPORT INFORMATION
  Report Type: Spontaneous
  Country: US (occurrence: US)
  Receive Date: 20250107
  Receipt Date: 20250107
  Transmission Date: 20250408
  Serious: Yes (Death)
  Sender: SAMSUNG BIOEPIS
  Company Number: US-SAMSUNG BIOEPIS-SB-2025-00119

PATIENT
  Age: 81 Year
  Sex: Male

DRUGS (5)
  1. INFLIXIMAB [Suspect]
     Active Substance: INFLIXIMAB
     Indication: Immune-mediated enterocolitis
  2. GANCICLOVIR [Suspect]
     Active Substance: GANCICLOVIR
     Indication: Immune-mediated enterocolitis
  3. NIVOLUMAB [Suspect]
     Active Substance: NIVOLUMAB
     Indication: Metastatic malignant melanoma
  4. RELATLIMAB [Suspect]
     Active Substance: RELATLIMAB
     Indication: Metastatic malignant melanoma
  5. PREDNISONE [Suspect]
     Active Substance: PREDNISONE
     Indication: Immune-mediated enterocolitis

REACTIONS (4)
  - Multiple organ dysfunction syndrome [Fatal]
  - Clostridium difficile infection [Fatal]
  - Pseudomembranous colitis [Fatal]
  - Off label use [Unknown]
